FAERS Safety Report 11907000 (Version 1)
Quarter: 2016Q1

REPORT INFORMATION
  Report Type: Spontaneous
  Country: FR (occurrence: FR)
  Receive Date: 20160111
  Receipt Date: 20160111
  Transmission Date: 20160526
  Serious: Yes (Other)
  Sender: FDA-Public Use
  Company Number: FR-DEP_13356_2016

PATIENT
  Age: 75 Year
  Sex: Male
  Weight: 62 kg

DRUGS (2)
  1. PECFENT [Suspect]
     Active Substance: FENTANYL CITRATE
     Dosage: 100 MCG/ 1 BOTTLE
     Route: 045
     Dates: start: 20151126
  2. FENTANYL. [Concomitant]
     Active Substance: FENTANYL
     Dosage: DF

REACTIONS (4)
  - Somnolence [Recovering/Resolving]
  - Gait disturbance [Recovering/Resolving]
  - Incorrect dose administered [Recovering/Resolving]
  - Accidental overdose [Recovering/Resolving]

NARRATIVE: CASE EVENT DATE: 20151124
